FAERS Safety Report 8772959 (Version 1)
Quarter: 2012Q4

REPORT INFORMATION
  Report Type: 
  Country: IT (occurrence: IT)
  Receive Date: 20120907
  Receipt Date: 20120907
  Transmission Date: 20130627
  Serious: Yes (Hospitalization)
  Sender: FDA-Public Use
  Company Number: IT-GILEAD-2012-0060480

PATIENT
  Age: 69 Year
  Sex: Male

DRUGS (2)
  1. RANOLAZINE [Suspect]
     Indication: ANGINA PECTORIS
     Dosage: 500 mg, BID
     Dates: start: 20110901, end: 20111201
  2. FENOBARBITAL [Concomitant]
     Indication: CRANIOCEREBRAL INJURY
     Dosage: UNK

REACTIONS (4)
  - Duodenitis [Recovered/Resolved]
  - Lethargy [Recovered/Resolved]
  - Decreased appetite [Recovered/Resolved]
  - Dyspepsia [Recovered/Resolved]
